FAERS Safety Report 8597997-5 (Version None)
Quarter: 2012Q3

REPORT INFORMATION
  Report Type: 
  Country: None (occurrence: None)
  Receive Date: 20120816
  Receipt Date: 20120810
  Transmission Date: 20120928
  Serious: No
  Sender: FDA-Public Use
  Company Number: US-B.I. PHARMACEUTICALS,INC./RIDGEFIELD-2012-BP-18880BP

PATIENT
  Sex: Female

DRUGS (7)
  1. CELEBREX [Concomitant]
     Indication: ARTHRITIS
  2. SPIRIVA [Suspect]
     Route: 048
     Dates: start: 20120810, end: 20120810
  3. METOPROLOL TARTRATE [Concomitant]
     Indication: ARRHYTHMIA
  4. SPIRIVA [Suspect]
     Indication: CHRONIC OBSTRUCTIVE PULMONARY DISEASE
     Dosage: 18 MCG
     Route: 055
     Dates: start: 20120528
  5. HYDROCHLOROTHIAZIDE [Concomitant]
     Dosage: 12.5 MG
     Route: 048
  6. EYE CAPS [Concomitant]
     Indication: CATARACT
  7. QUINAPRIL [Concomitant]
     Indication: HYPERTENSION

REACTIONS (1)
  - INCORRECT ROUTE OF DRUG ADMINISTRATION [None]
